FAERS Safety Report 7080377-1 (Version None)
Quarter: 2010Q4

REPORT INFORMATION
  Report Type: 
  Country: None (occurrence: None)
  Receive Date: 20101025
  Receipt Date: 20101007
  Transmission Date: 20110411
  Serious: Yes (Hospitalization, Other)
  Sender: FDA-Public Use
  Company Number: ACO_02634_2010

PATIENT
  Sex: Female
  Weight: 55.3388 kg

DRUGS (14)
  1. AMPYRA [Suspect]
     Indication: GAIT DISTURBANCE
     Dosage: (10 MG BID) ; (10 MG QD) ; (10 MG BID)
     Dates: end: 20100826
  2. AMPYRA [Suspect]
     Indication: GAIT DISTURBANCE
     Dosage: (10 MG BID) ; (10 MG QD) ; (10 MG BID)
     Dates: start: 20100827, end: 20100828
  3. AMPYRA [Suspect]
     Indication: GAIT DISTURBANCE
     Dosage: (10 MG BID) ; (10 MG QD) ; (10 MG BID)
     Dates: start: 20100410
  4. FUROSEMIDE [Concomitant]
  5. BACLOFEN [Concomitant]
  6. EFFEXOR [Concomitant]
  7. PRAVACHOL [Concomitant]
  8. POTASSIUM CHLORIDE [Concomitant]
  9. COPAXONE /03175301/ [Concomitant]
  10. CHEMOTHERAPEUTICS [Concomitant]
  11. DEMADEX [Concomitant]
  12. TORSEMIDE [Concomitant]
  13. SPIRONOLACTONE [Concomitant]
  14. MULTI-VITAMINS [Concomitant]

REACTIONS (15)
  - AMNESIA [None]
  - ASTHENIA [None]
  - BALANCE DISORDER [None]
  - CONDITION AGGRAVATED [None]
  - CONVULSION [None]
  - FATIGUE [None]
  - FLUID INTAKE REDUCED [None]
  - GAIT DISTURBANCE [None]
  - HYPOAESTHESIA [None]
  - HYPOPHAGIA [None]
  - LOSS OF CONSCIOUSNESS [None]
  - MENTAL STATUS CHANGES [None]
  - PRESYNCOPE [None]
  - RESUSCITATION [None]
  - SENSATION OF HEAVINESS [None]
